FAERS Safety Report 24992440 (Version 1)
Quarter: 2025Q1

REPORT INFORMATION
  Report Type: Spontaneous
  Country: FR (occurrence: FR)
  Receive Date: 20250220
  Receipt Date: 20250220
  Transmission Date: 20250409
  Serious: Yes (Hospitalization)
  Sender: BAUSCH AND LOMB
  Company Number: None

PATIENT
  Age: 50 Year
  Sex: Male
  Weight: 80 kg

DRUGS (7)
  1. VENLAFAXINE [Suspect]
     Active Substance: VENLAFAXINE HYDROCHLORIDE
     Indication: Anxiety disorder
     Route: 048
     Dates: start: 20241127
  2. VENLAFAXINE [Suspect]
     Active Substance: VENLAFAXINE HYDROCHLORIDE
     Route: 048
     Dates: start: 20241205
  3. PROPRANOLOL [Concomitant]
     Active Substance: PROPRANOLOL HYDROCHLORIDE
     Indication: Migraine without aura
     Route: 048
     Dates: start: 20240919, end: 20240926
  4. PROPRANOLOL [Concomitant]
     Active Substance: PROPRANOLOL HYDROCHLORIDE
     Route: 048
     Dates: start: 20240926, end: 20241003
  5. PROPRANOLOL [Concomitant]
     Active Substance: PROPRANOLOL HYDROCHLORIDE
     Route: 048
     Dates: start: 20241003, end: 20241010
  6. PROPRANOLOL [Concomitant]
     Active Substance: PROPRANOLOL HYDROCHLORIDE
     Route: 048
     Dates: start: 20241010, end: 20241017
  7. PROPRANOLOL [Concomitant]
     Active Substance: PROPRANOLOL HYDROCHLORIDE
     Route: 048
     Dates: start: 20241017

REACTIONS (2)
  - Status migrainosus [Recovered/Resolved]
  - Headache [Recovered/Resolved]

NARRATIVE: CASE EVENT DATE: 20241127
